FAERS Safety Report 24196653 (Version 4)
Quarter: 2024Q4

REPORT INFORMATION
  Report Type: Spontaneous
  Country: US (occurrence: US)
  Receive Date: 20240810
  Receipt Date: 20241219
  Transmission Date: 20250115
  Serious: No
  Sender: BRISTOL-MYERS SQUIBB COMPANY
  Company Number: US-BRISTOL-MYERS SQUIBB COMPANY-2024-126222

PATIENT
  Age: 79 Year
  Sex: Female

DRUGS (4)
  1. LENALIDOMIDE [Suspect]
     Active Substance: LENALIDOMIDE
     Indication: Plasma cell myeloma
     Dosage: FREQUENCY: TAKE 1 CAPSULE BY MOUTH FIVE TIMES WEEKLY FOR 3 WEEKS ON THEN 1 WEEK OFF
     Route: 048
  2. LENALIDOMIDE [Suspect]
     Active Substance: LENALIDOMIDE
     Dosage: FREQUENCY: TAKE 1 CAPSULE BY MOUTH 3 TIMES A WEEK FOR 21 DAYS THEN 7 DAYS OFF TAKE WITH WATER. DO NO
     Route: 048
  3. LENALIDOMIDE [Suspect]
     Active Substance: LENALIDOMIDE
     Dosage: FREQUENCY: TAKE 1 CAPSULE BY MOUTH MONDAY, WEDNESDAY AND FRIDAY FOR 3 WEEKS ON, THEN 1 WEEK OFF
     Route: 048
  4. LENALIDOMIDE [Suspect]
     Active Substance: LENALIDOMIDE
     Dosage: FREQUENCY: TAKE 1 CAPSULE BY MOUTH EVERY MONDAY, WEDNESDAY, AND FRIDAY ON DAYS 1-21, THEN OFF 7 DAYS
     Route: 048

REACTIONS (6)
  - Pain [Not Recovered/Not Resolved]
  - Off label use [Unknown]
  - Balance disorder [Recovering/Resolving]
  - Eye irritation [Recovering/Resolving]
  - Vein disorder [Recovering/Resolving]
  - Memory impairment [Not Recovered/Not Resolved]
